FAERS Safety Report 11364881 (Version 1)
Quarter: 2015Q3

REPORT INFORMATION
  Report Type: Spontaneous
  Country: US (occurrence: US)
  Receive Date: 20150811
  Receipt Date: 20150811
  Transmission Date: 20151125
  Serious: Yes (Other)
  Sender: FDA-Public Use
  Company Number: US-PFIZER INC-2015264827

PATIENT
  Age: 11 Year
  Sex: Male
  Weight: 36 kg

DRUGS (1)
  1. ZOLOFT [Suspect]
     Active Substance: SERTRALINE HYDROCHLORIDE
     Indication: ANGER
     Dosage: 50 MG, DAILY

REACTIONS (2)
  - Product use issue [Unknown]
  - Suicide attempt [Unknown]
